FAERS Safety Report 25488490 (Version 1)
Quarter: 2025Q2

REPORT INFORMATION
  Report Type: Report from Study
  Country: IN (occurrence: IN)
  Receive Date: 20250627
  Receipt Date: 20250627
  Transmission Date: 20250716
  Serious: Yes (Death, Other)
  Sender: DAIICHI
  Company Number: IN-AstraZeneca-CH-00897085A

PATIENT
  Age: 56 Year
  Sex: Female

DRUGS (1)
  1. ENHERTU [Suspect]
     Active Substance: FAM-TRASTUZUMAB DERUXTECAN-NXKI
     Indication: HER2 positive breast cancer
     Dosage: 100 MG, ONCE EVERY 3 WK
     Route: 041

REACTIONS (3)
  - Cardiac arrest [Fatal]
  - Pneumonia [Fatal]
  - Pharyngeal ulceration [Fatal]

NARRATIVE: CASE EVENT DATE: 20250622
